FAERS Safety Report 5605141-9 (Version None)
Quarter: 2008Q1

REPORT INFORMATION
  Report Type: 
  Country: None (occurrence: None)
  Receive Date: 20080123
  Receipt Date: 20080110
  Transmission Date: 20080703
  Serious: Yes (Hospitalization)
  Sender: FDA-Public Use
  Company Number: CLOF-1000038

PATIENT
  Age: 66 Year
  Sex: Male

DRUGS (10)
  1. CLOFARABINE AND/OR ARA-C (CODE NOT BROKEN) SOLUTION FOR INFUSION [Suspect]
     Indication: MYELOID LEUKAEMIA
     Dosage: 40 MG/M2, INTRAVENOUS
     Route: 042
     Dates: start: 20071217, end: 20071221
  2. CYTARABINE [Suspect]
     Indication: MYELOID LEUKAEMIA
     Dosage: 1 MG/M2, QD, INTRAVENOUS
     Route: 042
     Dates: start: 20071217, end: 20071221
  3. PROTONIX [Concomitant]
  4. OXYCODONE HCL [Concomitant]
  5. FLAGYL [Concomitant]
  6. TOBRAMYCIN [Concomitant]
  7. POSACONAZOLE [Concomitant]
  8. CEFTRIAXONE [Concomitant]
  9. NYSTATIN [Concomitant]
  10. ZOSYN [Concomitant]

REACTIONS (17)
  - BLOOD CREATININE INCREASED [None]
  - CATHETER RELATED COMPLICATION [None]
  - COLITIS ULCERATIVE [None]
  - ERYTHEMA [None]
  - FAECAL INCONTINENCE [None]
  - FLUID OVERLOAD [None]
  - FUNGAL SKIN INFECTION [None]
  - INCONTINENCE [None]
  - LEUKOPLAKIA [None]
  - NEUTROPENIA [None]
  - OEDEMA PERIPHERAL [None]
  - PAINFUL DEFAECATION [None]
  - PROCTITIS [None]
  - PULMONARY OEDEMA [None]
  - RASH MACULO-PAPULAR [None]
  - SKIN EXFOLIATION [None]
  - SKIN NODULE [None]
